FAERS Safety Report 4401119-1 (Version None)
Quarter: 2004Q3

REPORT INFORMATION
  Report Type: 
  Country: None (occurrence: None)
  Receive Date: 20040907
  Receipt Date: 20031107
  Transmission Date: 20050211
  Serious: No
  Sender: FDA-Public Use
  Company Number: US-BRISTOL-MYERS SQUIBB COMPANY-12430567

PATIENT
  Age: 86 Year
  Sex: Female
  Weight: 54 kg

DRUGS (10)
  1. COUMADIN [Suspect]
     Indication: POSTOPERATIVE CARE
     Dosage: 2MG/2 NIGHTS ALTERNATING 3MG/1 NIGHT. AFTER D/C 5 DAYS BEGAN 1MG/DAY ALTERNATING WITH 2MG/DAY.
     Route: 048
     Dates: start: 20031001, end: 20031022
  2. COUMADIN [Suspect]
     Route: 048
     Dates: start: 20030901, end: 20031001
  3. COUMADIN [Suspect]
     Dosage: 1 MG PER DAY ALTERNATING WITH 2 MG ONCE A DAY.
     Route: 048
     Dates: start: 20031027
  4. ZESTRIL [Concomitant]
  5. INSULIN [Concomitant]
  6. ADVIL [Concomitant]
  7. ATIVAN [Concomitant]
  8. LOTRIMIN [Concomitant]
  9. MORPHINE [Concomitant]
  10. BETA BLOCKER [Concomitant]

REACTIONS (2)
  - INTERNATIONAL NORMALISED RATIO INCREASED [None]
  - MENTAL STATUS CHANGES [None]
